FAERS Safety Report 21770664 (Version 2)
Quarter: 2023Q1

REPORT INFORMATION
  Report Type: Spontaneous
  Country: US (occurrence: US)
  Receive Date: 20221223
  Receipt Date: 20230123
  Transmission Date: 20230417
  Serious: No
  Sender: FDA-Public Use
  Company Number: US-SA-SAC20221222000095

PATIENT
  Age: 82 Year
  Sex: Female

DRUGS (8)
  1. DUPIXENT [Suspect]
     Active Substance: DUPILUMAB
     Indication: Dermatitis atopic
     Dosage: 300 MG, QOW
     Route: 058
     Dates: start: 20220808
  2. CLOBETASOL [Concomitant]
     Active Substance: CLOBETASOL
  3. LANTUS [Concomitant]
     Active Substance: INSULIN GLARGINE
  4. INDAPAMIDE [Concomitant]
     Active Substance: INDAPAMIDE
  5. ATORVASTATIN [Concomitant]
     Active Substance: ATORVASTATIN
  6. AMLODIPINE [Concomitant]
     Active Substance: AMLODIPINE BESYLATE
  7. CARVEDILOL [Concomitant]
     Active Substance: CARVEDILOL
  8. NOVOLOG [Concomitant]
     Active Substance: INSULIN ASPART

REACTIONS (2)
  - Injection site pain [Unknown]
  - Injection site erythema [Unknown]

NARRATIVE: CASE EVENT DATE: 20220810
